FAERS Safety Report 6204917-7 (Version None)
Quarter: 2009Q2

REPORT INFORMATION
  Report Type: 
  Country: None (occurrence: None)
  Receive Date: 20090526
  Receipt Date: 20090513
  Transmission Date: 20091009
  Serious: Yes (Other)
  Sender: FDA-Public Use
  Company Number: 000844

PATIENT
  Sex: Female

DRUGS (1)
  1. VIMPAT [Suspect]

REACTIONS (2)
  - FOOD ALLERGY [None]
  - STEVENS-JOHNSON SYNDROME [None]
